FAERS Safety Report 18908024 (Version 2)
Quarter: 2021Q1

REPORT INFORMATION
  Report Type: Spontaneous
  Country: GB (occurrence: GB)
  Receive Date: 20210218
  Receipt Date: 20210313
  Transmission Date: 20210420
  Serious: Yes (Disabling, Other)
  Sender: FDA-Public Use
  Company Number: GB-TORRENT-00025007

PATIENT
  Age: 35 Year
  Sex: Female
  Weight: 150 kg

DRUGS (1)
  1. MONTELUKAST [Suspect]
     Active Substance: MONTELUKAST SODIUM
     Indication: ILL-DEFINED DISORDER
     Dosage: 10 MG
     Route: 048

REACTIONS (3)
  - Hypertension [Unknown]
  - Weight loss poor [Recovered/Resolved]
  - Depression [Unknown]
